FAERS Safety Report 5797031-6 (Version None)
Quarter: 2008Q3

REPORT INFORMATION
  Report Type: 
  Country: None (occurrence: None)
  Receive Date: 20080701
  Receipt Date: 20080624
  Transmission Date: 20090109
  Serious: Yes (Other)
  Sender: FDA-Public Use
  Company Number: US-ELI_LILLY_AND_COMPANY-US200805002258

PATIENT
  Sex: Male
  Weight: 110.66 kg

DRUGS (5)
  1. BYETTA [Suspect]
     Dosage: 5 UG, UNKNOWN
     Dates: start: 20070901, end: 20080320
  2. METFORMIN HCL [Concomitant]
     Dosage: 850 MG, 3/D
  3. NIASPAN [Concomitant]
     Dosage: UNK, UNKNOWN
  4. CRESTOR [Concomitant]
     Dosage: UNK, UNKNOWN
  5. OMACOR [Concomitant]
     Dosage: UNK, UNKNOWN

REACTIONS (3)
  - NEPHROLITHIASIS [None]
  - PANCREATITIS [None]
  - RENAL COLIC [None]
